FAERS Safety Report 13845281 (Version 1)
Quarter: 2017Q3

REPORT INFORMATION
  Report Type: Spontaneous
  Country: US (occurrence: US)
  Receive Date: 20170808
  Receipt Date: 20170808
  Transmission Date: 20171127
  Serious: Yes (Other)
  Sender: FDA-Public Use
  Company Number: US-PFIZER INC-2017336693

PATIENT
  Age: 88 Year
  Sex: Female

DRUGS (1)
  1. XANAX [Suspect]
     Active Substance: ALPRAZOLAM
     Dosage: 1 MG, 3X/DAY
     Route: 048

REACTIONS (7)
  - Hypertension [Unknown]
  - Joint swelling [Unknown]
  - Eczema [Unknown]
  - Musculoskeletal pain [Unknown]
  - Skin hyperpigmentation [Unknown]
  - Psoriasis [Unknown]
  - Arthralgia [Unknown]
